FAERS Safety Report 7465600-3 (Version None)
Quarter: 2011Q2

REPORT INFORMATION
  Report Type: 
  Country: None (occurrence: None)
  Receive Date: 20110509
  Receipt Date: 20110502
  Transmission Date: 20111010
  Serious: Yes (Hospitalization)
  Sender: FDA-Public Use
  Company Number: FR-B.I. PHARMACEUTICALS,INC./RIDGEFIELD-2011-FF-00378FF

PATIENT
  Sex: Male
  Weight: 86 kg

DRUGS (4)
  1. PRADAXA [Suspect]
     Indication: ATRIAL FIBRILLATION
     Dosage: 220 MG
     Route: 048
     Dates: start: 20100501, end: 20110209
  2. CRESTOR [Concomitant]
     Route: 048
  3. NEXIUM [Concomitant]
     Route: 048
  4. KARDEGIC [Concomitant]
     Indication: ATRIAL FIBRILLATION
     Dosage: 75 MG
     Route: 048

REACTIONS (3)
  - RESPIRATORY DISTRESS [None]
  - ISCHAEMIC STROKE [None]
  - DRUG INEFFECTIVE [None]
